FAERS Safety Report 6215751-6 (Version None)
Quarter: 2009Q2

REPORT INFORMATION
  Report Type: 
  Country: None (occurrence: None)
  Receive Date: 20090603
  Receipt Date: 20090521
  Transmission Date: 20091009
  Serious: Yes (Hospitalization, Other)
  Sender: FDA-Public Use
  Company Number: 2009-00779

PATIENT
  Age: 64 Year
  Sex: Male
  Weight: 55 kg

DRUGS (9)
  1. VELCADE [Suspect]
     Indication: MULTIPLE MYELOMA
     Dosage: 2 MG, INTRAVENOUS; 1 MG, INTRAVENOUS
     Route: 042
     Dates: start: 20090120, end: 20090130
  2. VELCADE [Suspect]
     Indication: MULTIPLE MYELOMA
     Dosage: 2 MG, INTRAVENOUS; 1 MG, INTRAVENOUS
     Route: 042
     Dates: start: 20090304
  3. THALIDOMIDE [Suspect]
     Indication: MULTIPLE MYELOMA
     Dosage: 100 MG, ORAL
     Route: 048
     Dates: start: 20070214, end: 20090319
  4. PURSENNID (SENNA LEAF) [Concomitant]
  5. CLARITHROMYCIN [Concomitant]
  6. DECADRON [Concomitant]
  7. MELPHALAN [Concomitant]
  8. CALCIUM POLYSTYRENE SULFONATE (CALCIUM POLYSTYRENE SULFONATE) [Concomitant]
  9. LASIX [Concomitant]

REACTIONS (8)
  - BLOOD LACTATE DEHYDROGENASE INCREASED [None]
  - DYSURIA [None]
  - NEUROGENIC BLADDER [None]
  - NEUROPATHY PERIPHERAL [None]
  - OEDEMA PERIPHERAL [None]
  - PYREXIA [None]
  - TUMOUR LYSIS SYNDROME [None]
  - URINARY RETENTION [None]
